FAERS Safety Report 9385644 (Version 1)
Quarter: 2013Q3

REPORT INFORMATION
  Report Type: Spontaneous
  Country: GB (occurrence: GB)
  Receive Date: 20130705
  Receipt Date: 20130705
  Transmission Date: 20140515
  Serious: Yes (Hospitalization)
  Sender: FDA-Public Use
  Company Number: GB-GLAXOSMITHKLINE-B0904340A

PATIENT
  Age: 59 Year
  Sex: Male

DRUGS (3)
  1. FLIXONASE [Suspect]
     Indication: SINUSITIS BACTERIAL
     Dosage: 12IUAX PER DAY
     Route: 045
     Dates: start: 20130205, end: 20130319
  2. NASONEX [Concomitant]
     Indication: SINUSITIS
     Dosage: 2IUAX PER DAY
     Route: 045
     Dates: start: 20130320
  3. CLARITHROMYCIN [Concomitant]
     Indication: CHRONIC SINUSITIS
     Dosage: 250MG PER DAY
     Route: 048
     Dates: start: 20130205, end: 20130406

REACTIONS (5)
  - Adrenal suppression [Recovered/Resolved]
  - Vomiting [Unknown]
  - Diarrhoea [Unknown]
  - Hyponatraemia [Recovered/Resolved]
  - Malaise [Unknown]
